FAERS Safety Report 10277781 (Version 2)
Quarter: 2014Q3

REPORT INFORMATION
  Report Type: Spontaneous
  Country: CA (occurrence: CA)
  Receive Date: 20140704
  Receipt Date: 20140710
  Transmission Date: 20150326
  Serious: Yes (Hospitalization, Other)
  Sender: FDA-Public Use
  Company Number: CA-AMGEN-CANSP2014049549

PATIENT
  Age: 80 Year
  Sex: Female

DRUGS (1)
  1. ARANESP [Suspect]
     Active Substance: DARBEPOETIN ALFA
     Indication: RENAL FAILURE CHRONIC
     Dosage: 80 MUG, UNK
     Route: 065
     Dates: start: 20140416

REACTIONS (4)
  - Dyspnoea [Unknown]
  - Palpitations [Unknown]
  - Tachycardia [Unknown]
  - Cardiac valve disease [Unknown]
